FAERS Safety Report 4580742-8 (Version None)
Quarter: 2005Q1

REPORT INFORMATION
  Report Type: 
  Country: None (occurrence: None)
  Receive Date: 20050127
  Receipt Date: 20040819
  Transmission Date: 20050727
  Serious: No
  Sender: FDA-Public Use
  Company Number: USA040875963

PATIENT
  Age: 46 Year
  Sex: Female

DRUGS (2)
  1. STRATTERA [Suspect]
     Indication: ATTENTION DEFICIT/HYPERACTIVITY DISORDER
     Dosage: 25 MG/ 1 AT BEDTIME
     Dates: start: 20040817, end: 20040817
  2. HORMONES [Concomitant]

REACTIONS (5)
  - DRY MOUTH [None]
  - EUPHORIC MOOD [None]
  - INSOMNIA [None]
  - MIDDLE INSOMNIA [None]
  - PARAESTHESIA [None]
